FAERS Safety Report 18557918 (Version 4)
Quarter: 2020Q4

REPORT INFORMATION
  Report Type: Spontaneous
  Country: PL (occurrence: PL)
  Receive Date: 20201130
  Receipt Date: 20201215
  Transmission Date: 20210114
  Serious: Yes (Hospitalization, Other)
  Sender: FDA-Public Use
  Company Number: PL-AUROBINDO-AUR-APL-2020-058465

PATIENT
  Age: 77 Year
  Sex: Male

DRUGS (1)
  1. IMATINIB FILM COATED TABLETS [Suspect]
     Active Substance: IMATINIB
     Indication: CHRONIC MYELOID LEUKAEMIA
     Dosage: 400 MILLIGRAM, ONCE A DAY
     Route: 048

REACTIONS (10)
  - Rash papular [Recovered/Resolved]
  - Skin lesion [Recovered/Resolved]
  - Skin abrasion [Recovered/Resolved]
  - Leukopenia [Unknown]
  - Eosinophilia [Unknown]
  - Pruritus [Recovered/Resolved]
  - Rash erythematous [Recovered/Resolved]
  - Lymphadenopathy [Unknown]
  - Skin exfoliation [Recovered/Resolved]
  - Anaemia [Unknown]
